FAERS Safety Report 13737674 (Version 3)
Quarter: 2017Q4

REPORT INFORMATION
  Report Type: Report from Study
  Country: US (occurrence: US)
  Receive Date: 20170710
  Receipt Date: 20171219
  Transmission Date: 20180320
  Serious: Yes (Death, Hospitalization, Other)
  Sender: FDA-Public Use
  Company Number: US-SAOL THERAPEUTICS-2016SAO00030

PATIENT
  Age: 63 Year
  Sex: Male

DRUGS (25)
  1. COMPOUNDED BACLOFEN [Suspect]
     Active Substance: BACLOFEN
     Dosage: 100.01 ?G, \DAY
     Route: 037
     Dates: end: 20140805
  2. COMPOUNDED BACLOFEN [Suspect]
     Active Substance: BACLOFEN
     Dosage: 284.86 ?G, \DAY
     Dates: start: 20170628
  3. DILAUDID [Suspect]
     Active Substance: HYDROMORPHONE HYDROCHLORIDE
     Dosage: 2.7472 MG, \DAY
     Dates: start: 20170524, end: 20170628
  4. COMPOUNDED BACLOFEN [Suspect]
     Active Substance: BACLOFEN
     Dosage: 218.88 ?G, \DAY
     Route: 037
     Dates: start: 20170413, end: 20170524
  5. COMPOUNDED BACLOFEN [Suspect]
     Active Substance: BACLOFEN
     Dosage: 294.51 ?G, \DAY- MAX
     Dates: start: 20170413, end: 20170524
  6. HYDROMORPHONE [Suspect]
     Active Substance: HYDROMORPHONE
     Route: 048
  7. COMPOUNDED BACLOFEN [Suspect]
     Active Substance: BACLOFEN
     Dosage: 120.14 ?G, \DAY
     Route: 037
     Dates: start: 20140805
  8. BUPIVACAINE. [Suspect]
     Active Substance: BUPIVACAINE
     Dosage: 18.761 MG, \DAY
     Dates: start: 20170413, end: 20170524
  9. BUPIVACAINE. [Suspect]
     Active Substance: BUPIVACAINE
     Dosage: 24.416 MG, \DAY
     Dates: start: 20170628
  10. BUPIVACAINE. [Suspect]
     Active Substance: BUPIVACAINE
     Dosage: 34.644 MG, \DAY-MAX
     Dates: start: 20170628
  11. DILAUDID [Suspect]
     Active Substance: HYDROMORPHONE HYDROCHLORIDE
     Dosage: 2.5014 MG, \DAY
     Dates: start: 20170413, end: 20170524
  12. DILAUDID [Suspect]
     Active Substance: HYDROMORPHONE HYDROCHLORIDE
     Dosage: 3.2555 MG, \DAY
     Dates: start: 20170628
  13. COMPOUNDED BACLOFEN [Suspect]
     Active Substance: BACLOFEN
     Dosage: 240.38 ?G, \DAY
     Dates: start: 20170524, end: 20170628
  14. COMPOUNDED BACLOFEN [Suspect]
     Active Substance: BACLOFEN
     Dosage: 404.41 ?G, \DAY-MAX
     Dates: start: 20170628
  15. BUPIVACAINE. [Suspect]
     Active Substance: BUPIVACAINE
     Dosage: 9.010 MG, \DAY
     Dates: start: 20160805
  16. BUPIVACAINE. [Suspect]
     Active Substance: BUPIVACAINE
     Dosage: 27.062 MG, \DAY-MAX
     Dates: start: 20170524, end: 20170628
  17. DILAUDID [Suspect]
     Active Substance: HYDROMORPHONE HYDROCHLORIDE
     Dosage: 3.6082 MG, \DAY-MAX
     Dates: start: 20170524, end: 20170628
  18. DILAUDID [Suspect]
     Active Substance: HYDROMORPHONE HYDROCHLORIDE
     Dosage: 4.6218 MG, \DAY-MAX
     Dates: start: 20170628
  19. COMPOUNDED BACLOFEN [Suspect]
     Active Substance: BACLOFEN
     Dosage: 315.72 ?G, \DAY- MAX
     Dates: start: 20170524, end: 20170628
  20. BUPIVACAINE. [Suspect]
     Active Substance: BUPIVACAINE
     Dosage: 7.501 MG, \DAY
     Route: 037
     Dates: end: 20160805
  21. BUPIVACAINE. [Suspect]
     Active Substance: BUPIVACAINE
     Dosage: 20.604 MG, \DAY
     Dates: start: 20170524, end: 20170628
  22. DILAUDID [Suspect]
     Active Substance: HYDROMORPHONE HYDROCHLORIDE
     Dosage: 1.201 MG, \DAY
     Dates: start: 20140805
  23. BUPIVACAINE. [Suspect]
     Active Substance: BUPIVACAINE
     Dosage: 25.244 MG, \DAY
     Dates: start: 20170413, end: 20170524
  24. DILAUDID [Suspect]
     Active Substance: HYDROMORPHONE HYDROCHLORIDE
     Dosage: 3.3659 MG, \DAY-MAX
     Dates: start: 20170413, end: 20170524
  25. DILAUDID [Suspect]
     Active Substance: HYDROMORPHONE HYDROCHLORIDE
     Dosage: 1 MG, \DAY
     Route: 037
     Dates: end: 20140805

REACTIONS (10)
  - Implant site pain [Not Recovered/Not Resolved]
  - Device dislocation [Not Recovered/Not Resolved]
  - Hypoaesthesia [Unknown]
  - Disease progression [Unknown]
  - Prostate cancer metastatic [Fatal]
  - Implant site pruritus [Recovered/Resolved]
  - Implant site swelling [Recovered/Resolved]
  - Muscular weakness [Unknown]
  - Limb discomfort [Not Recovered/Not Resolved]
  - Weight decreased [Not Recovered/Not Resolved]

NARRATIVE: CASE EVENT DATE: 20140213
